FAERS Safety Report 6555480-2 (Version None)
Quarter: 2010Q1

REPORT INFORMATION
  Report Type: 
  Country: None (occurrence: None)
  Receive Date: 20100128
  Receipt Date: 20100122
  Transmission Date: 20100710
  Serious: Yes (Hospitalization)
  Sender: FDA-Public Use
  Company Number: NL-WYE-G04756609

PATIENT
  Age: 63 Year
  Sex: Female

DRUGS (2)
  1. EFFEXOR XR [Suspect]
     Indication: DEPRESSION
     Dosage: FEW YEARS 37.5 MG 2X A DAY, JUN-2009 TO JUL-2009 75 MG 2X A DAY, NOW 37.5 2X A DAY
     Route: 048
  2. EFFEXOR XR [Suspect]
     Indication: ANXIETY DISORDER

REACTIONS (3)
  - LEFT VENTRICULAR FAILURE [None]
  - PULMONARY EMBOLISM [None]
  - PULMONARY HYPERTENSION [None]
